FAERS Safety Report 23579837 (Version 1)
Quarter: 2024Q1

REPORT INFORMATION
  Report Type: Spontaneous
  Country: US (occurrence: None)
  Receive Date: 20240228
  Receipt Date: 20240228
  Transmission Date: 20240410
  Serious: Yes (Hospitalization)
  Sender: FDA-Public Use
  Company Number: None

PATIENT
  Age: 35 Year
  Sex: Female
  Weight: 63.1 kg

DRUGS (21)
  1. DEFIBROTIDE SODIUM [Suspect]
     Active Substance: DEFIBROTIDE SODIUM
     Indication: Venoocclusive liver disease
     Dosage: OTHER FREQUENCY : Q6H;?
     Route: 041
     Dates: start: 20240103, end: 20240108
  2. acyclovir 400 MG PO BID [Concomitant]
  3. cetirizine 10 MG PO Daily [Concomitant]
  4. cyclobenzaprine 5 MG PO PRN [Concomitant]
  5. desvenlafaxine succinate 100 MG PO Daily [Concomitant]
  6. fluticasone 50 MCG/ACT 2 sprays each nostril Daily [Concomitant]
  7. folic acid 1 MG PO BID [Concomitant]
  8. glipiZIDE 2.5 MG PO Daily [Concomitant]
  9. isavuconazonium sulfate 372 MG PO Daily [Concomitant]
  10. letermovir 480 MG PO Daily [Concomitant]
  11. medroxyPROGESTERone 20 MG PO Daily [Concomitant]
  12. metoprolol tartrate 150 MG PO BID [Concomitant]
  13. Multiple Vitamin PO Daily [Concomitant]
  14. mycophenolate mofetil 1000 MG PO TID [Concomitant]
  15. Ondansetron 8 MG PO PRN [Concomitant]
  16. Pantoprazole 40 MG PO Daily [Concomitant]
  17. saline 0.65 % 1 nasal spray BID PRN [Concomitant]
  18. tacrolimus 3 MG PO BID [Concomitant]
  19. traZODone 300 MG PO QHS [Concomitant]
  20. ursodiol 300 MG PO TID [Concomitant]
  21. vitamin D-2, ergocalciferol, 50000 UNIT PO Weekly [Concomitant]

REACTIONS (2)
  - Hyperkalaemia [None]
  - Acidosis hyperchloraemic [None]

NARRATIVE: CASE EVENT DATE: 20240126
